FAERS Safety Report 20660897 (Version 1)
Quarter: 2022Q1

REPORT INFORMATION
  Report Type: Report from Study
  Country: US (occurrence: US)
  Receive Date: 20220331
  Receipt Date: 20220331
  Transmission Date: 20220423
  Serious: Yes (Hospitalization, Other)
  Sender: FDA-Public Use
  Company Number: RGB_SAE0034

PATIENT
  Age: 72 Year
  Sex: Male
  Weight: 80.8 kg

DRUGS (17)
  1. VERDIPERSTAT [Suspect]
     Active Substance: VERDIPERSTAT
     Indication: Amyotrophic lateral sclerosis
     Route: 048
     Dates: start: 20210927, end: 20211013
  2. VERDIPERSTAT [Suspect]
     Active Substance: VERDIPERSTAT
     Route: 048
     Dates: start: 20211109, end: 20211124
  3. RILUZOLE [Concomitant]
     Active Substance: RILUZOLE
     Indication: Product used for unknown indication
     Dates: start: 20210506, end: 20211024
  4. RILUZOLE [Concomitant]
     Active Substance: RILUZOLE
     Dates: start: 20211104, end: 20211124
  5. RILUZOLE [Concomitant]
     Active Substance: RILUZOLE
     Dates: start: 20220106, end: 20220209
  6. RILUZOLE [Concomitant]
     Active Substance: RILUZOLE
     Dates: start: 20220210
  7. ASPIRIN [Concomitant]
     Active Substance: ASPIRIN
     Indication: Product used for unknown indication
     Dates: start: 20210506
  8. TERAZOSIN [Concomitant]
     Active Substance: TERAZOSIN HYDROCHLORIDE
     Indication: Product used for unknown indication
     Dates: start: 2020
  9. SIMVASTATIN [Concomitant]
     Active Substance: SIMVASTATIN
     Indication: Product used for unknown indication
     Dates: start: 2005, end: 20211013
  10. OMEPRAZOLE [Concomitant]
     Active Substance: OMEPRAZOLE
     Indication: Product used for unknown indication
     Dates: start: 20210506
  11. ENALAPRIL [Concomitant]
     Active Substance: ENALAPRIL
     Indication: Product used for unknown indication
     Dates: start: 2000
  12. VITAMIN B12 [Concomitant]
     Active Substance: CYANOCOBALAMIN
     Indication: Product used for unknown indication
     Dates: start: 20210728
  13. COENZYME Q10 [Concomitant]
     Active Substance: DIETARY SUPPLEMENT\UBIDECARENONE
     Indication: Product used for unknown indication
     Dates: start: 20210728
  14. VITAMIN C [Concomitant]
     Active Substance: ASCORBIC ACID
     Indication: Product used for unknown indication
     Dates: start: 20210728
  15. VITAMIN E [Concomitant]
     Active Substance: .ALPHA.-TOCOPHEROL
     Indication: Product used for unknown indication
     Dates: start: 20210728
  16. BETA CAROTENE [Concomitant]
     Active Substance: BETA CAROTENE
     Indication: Product used for unknown indication
     Dates: start: 20210728
  17. PREDNISONE [Concomitant]
     Active Substance: PREDNISONE
     Indication: Product used for unknown indication
     Dates: end: 20211023

REACTIONS (1)
  - Febrile neutropenia [Recovered/Resolved]

NARRATIVE: CASE EVENT DATE: 20211122
